FAERS Safety Report 4708410-X (Version None)
Quarter: 2005Q3

REPORT INFORMATION
  Report Type: 
  Country: None (occurrence: None)
  Receive Date: 20050707
  Receipt Date: 20050701
  Transmission Date: 20060218
  Serious: Yes (Other)
  Sender: FDA-Public Use
  Company Number: AU-ROCHE-409373

PATIENT
  Age: 70 Year
  Sex: Male

DRUGS (2)
  1. XELODA [Suspect]
     Route: 048
  2. ZOPICLONE [Interacting]
     Indication: DRUG USE FOR UNKNOWN INDICATION
     Route: 065

REACTIONS (4)
  - ASTHENIA [None]
  - CYANOSIS [None]
  - DRUG INTERACTION [None]
  - FATIGUE [None]
